FAERS Safety Report 16333779 (Version 1)
Quarter: 2019Q2

REPORT INFORMATION
  Report Type: Spontaneous
  Country: US (occurrence: US)
  Receive Date: 20190520
  Receipt Date: 20190520
  Transmission Date: 20190711
  Serious: No
  Sender: FDA-Public Use
  Company Number: PHEH2019US020759

PATIENT
  Sex: Male

DRUGS (1)
  1. ENTRESTO [Suspect]
     Active Substance: SACUBITRIL\VALSARTAN
     Indication: ISCHAEMIC CARDIOMYOPATHY
     Dosage: 1 DF, BID (T PO BID)
     Route: 048
     Dates: start: 20190509

REACTIONS (3)
  - Chest pain [Recovered/Resolved]
  - Product use in unapproved indication [Unknown]
  - Pain in extremity [Recovered/Resolved]
